FAERS Safety Report 8429147-X (Version None)
Quarter: 2012Q2

REPORT INFORMATION
  Report Type: 
  Country: None (occurrence: None)
  Receive Date: 20120612
  Receipt Date: 20120604
  Transmission Date: 20120825
  Serious: Yes (Hospitalization)
  Sender: FDA-Public Use
  Company Number: US-BAYER-2012-056796

PATIENT
  Age: 25 Year
  Sex: Female
  Weight: 97.959 kg

DRUGS (21)
  1. DIFLUCAN [Concomitant]
     Dosage: 100 MG, UNK
     Route: 048
     Dates: start: 20071212
  2. FLAGYL [Concomitant]
     Dosage: UNK
     Dates: start: 20071212
  3. AUGMENTIN [Concomitant]
  4. FLAGYL [Concomitant]
     Dosage: 500 MG, TID
     Route: 048
     Dates: start: 20071008
  5. TORADOL [Concomitant]
     Indication: BACK PAIN
     Dosage: 60 MG, UNK
     Route: 030
     Dates: start: 20080124
  6. NAPROXEN (ALEVE) [Concomitant]
     Dosage: UNK
     Dates: start: 20080124
  7. IBUPROFEN [Concomitant]
     Dosage: UNK
     Route: 048
     Dates: start: 20080125
  8. WARFARIN [Concomitant]
     Indication: PULMONARY EMBOLISM
  9. YASMIN [Suspect]
  10. YAZ [Suspect]
  11. MUCINEX [Concomitant]
  12. ACETAMINOPHEN [Concomitant]
     Dosage: UNK
     Dates: start: 20080124
  13. WARFARIN [Concomitant]
     Indication: PULMONARY INFARCTION
  14. DIFLUCAN [Concomitant]
     Indication: VAGINAL INFECTION
     Dosage: 150 MG 1 EVERY 3 DAYS
     Route: 048
     Dates: start: 20071105
  15. CLARITIN-D [Concomitant]
     Indication: RHINITIS
     Dosage: 10 MG,DAILY
     Route: 048
     Dates: start: 20080122
  16. MILK OF MAGNESIA TAB [Concomitant]
     Indication: CONSTIPATION
  17. NORCO [Concomitant]
     Indication: PAIN
     Dosage: 5/324 MG
  18. AZITHROMYCIN [Concomitant]
     Indication: PHARYNGITIS
     Dosage: 250 MG TABLETS +#8211; 6 PACK
     Route: 048
     Dates: start: 20080122
  19. ACETAMINOPHEN [Concomitant]
  20. LIDODERM [Concomitant]
     Dosage: UNK
     Route: 061
     Dates: start: 20080125
  21. ZOFRAN [Concomitant]
     Indication: NAUSEA

REACTIONS (2)
  - PULMONARY INFARCTION [None]
  - PULMONARY EMBOLISM [None]
